FAERS Safety Report 13072694 (Version 2)
Quarter: 2018Q1

REPORT INFORMATION
  Report Type: Spontaneous
  Country: US (occurrence: US)
  Receive Date: 20161229
  Receipt Date: 20180115
  Transmission Date: 20180508
  Serious: Yes (Other)
  Sender: FDA-Public Use
  Company Number: US-SA-2016SA197885

PATIENT
  Age: 69 Year
  Sex: Female
  Weight: 70.31 kg

DRUGS (6)
  1. TAXOL [Concomitant]
     Active Substance: PACLITAXEL
  2. HYDROCHLOROTHIAZIDE/TRIAMTERENE [Concomitant]
     Route: 065
     Dates: start: 2001
  3. PARAPLATIN [Concomitant]
     Active Substance: CARBOPLATIN
  4. PREMARIN [Concomitant]
     Active Substance: ESTROGENS, CONJUGATED
     Route: 065
     Dates: start: 20040101, end: 20111231
  5. TAXOTERE [Suspect]
     Active Substance: DOCETAXEL
     Indication: OVARIAN CANCER STAGE II
     Route: 051
     Dates: start: 20110907, end: 20110907
  6. TAXOTERE [Suspect]
     Active Substance: DOCETAXEL
     Indication: OVARIAN CANCER STAGE II
     Route: 051
     Dates: start: 20110728, end: 20110728

REACTIONS (6)
  - Emotional distress [Unknown]
  - Psychological trauma [Unknown]
  - Alopecia [Not Recovered/Not Resolved]
  - Anxiety [Unknown]
  - Pain [Unknown]
  - Impaired quality of life [Unknown]
